FAERS Safety Report 6901068-0 (Version None)
Quarter: 2010Q3

REPORT INFORMATION
  Report Type: 
  Country: None (occurrence: None)
  Receive Date: 20100803
  Receipt Date: 20100721
  Transmission Date: 20110219
  Serious: Yes (Death, Hospitalization)
  Sender: FDA-Public Use
  Company Number: ES-ROCHE-680607

PATIENT
  Sex: Male
  Weight: 72 kg

DRUGS (5)
  1. CAPECITABINE [Suspect]
     Dosage: ON DAYS 1-14, PERMANENTLY DISCONTINUED
     Route: 048
     Dates: start: 20091228, end: 20091231
  2. IRINOTECAN HCL [Suspect]
     Dosage: LAST DOSE PRIOR TO SAE: 28 DEC 2009, FORM INFUSION, PERMANENTLY DISCONTINUED
     Route: 042
     Dates: start: 20091228, end: 20100110
  3. DIUZINE [Concomitant]
     Dates: end: 20100110
  4. ATROVENT [Concomitant]
     Dates: end: 20100110
  5. SERETIDE [Concomitant]
     Dosage: DRUG NAME: SETERIDE
     Dates: end: 20100110

REACTIONS (3)
  - ACUTE PRERENAL FAILURE [None]
  - DIARRHOEA [None]
  - VOMITING [None]
